FAERS Safety Report 8171903-X (Version None)
Quarter: 2012Q1

REPORT INFORMATION
  Report Type: 
  Country: None (occurrence: None)
  Receive Date: 20120113
  Receipt Date: 20110923
  Transmission Date: 20120608
  Serious: Yes (Other)
  Sender: FDA-Public Use
  Company Number: 2011S1000075

PATIENT
  Age: 55 Year
  Sex: Male

DRUGS (9)
  1. KRYSTEXXA [Suspect]
     Indication: GOUT
     Dosage: X1;IV ; 8 MG;X1;IV ; 8 MG;X1;IV ; 8 MG;X1;IV
     Route: 042
     Dates: start: 20110906, end: 20110906
  2. KRYSTEXXA [Suspect]
     Indication: GOUT
     Dosage: X1;IV ; 8 MG;X1;IV ; 8 MG;X1;IV ; 8 MG;X1;IV
     Route: 042
     Dates: start: 20110809, end: 20110809
  3. KRYSTEXXA [Suspect]
     Indication: GOUT
     Dosage: X1;IV ; 8 MG;X1;IV ; 8 MG;X1;IV ; 8 MG;X1;IV
     Route: 042
     Dates: start: 20110823, end: 20110823
  4. KRYSTEXXA [Suspect]
     Indication: GOUT
     Dosage: X1;IV ; 8 MG;X1;IV ; 8 MG;X1;IV ; 8 MG;X1;IV
     Route: 042
     Dates: start: 20110920, end: 20110920
  5. COLCRYS [Concomitant]
  6. INDOCIN /00003801/ [Concomitant]
  7. BENADRYL /00945501/ [Concomitant]
  8. SOLU-MEDROL [Concomitant]
  9. ALLOPURINOL [Concomitant]

REACTIONS (2)
  - THERAPEUTIC RESPONSE DECREASED [None]
  - INFUSION RELATED REACTION [None]
